FAERS Safety Report 10412613 (Version 2)
Quarter: 2015Q1

REPORT INFORMATION
  Report Type: Spontaneous
  Country: GB (occurrence: GB)
  Receive Date: 20140827
  Receipt Date: 20150326
  Transmission Date: 20150720
  Serious: Yes (Other)
  Sender: FDA-Public Use
  Company Number: GB-WATSON-2014-18370

PATIENT
  Sex: Male
  Weight: 87 kg

DRUGS (3)
  1. CANDESARTAN CILEXETIL (UNKNOWN) [Suspect]
     Active Substance: CANDESARTAN CILEXETIL
     Indication: HYPERTENSION
     Dosage: 2 MG, UNKNOWN
     Route: 048
  2. IRBESARTAN (UNKNOWN) [Suspect]
     Active Substance: IRBESARTAN
     Indication: HYPERTENSION
     Dosage: 75 MG, UNKNOWN
     Route: 048
     Dates: start: 20140605, end: 20140623
  3. LEVOTHYROXINE [Concomitant]
     Active Substance: LEVOTHYROXINE
     Indication: HYPOTHYROIDISM
     Dosage: 125 ?G, DAILY
     Route: 065

REACTIONS (4)
  - Back pain [Not Recovered/Not Resolved]
  - Condition aggravated [Unknown]
  - Dyspnoea exertional [Not Recovered/Not Resolved]
  - Throat irritation [Not Recovered/Not Resolved]
